FAERS Safety Report 8583781 (Version 3)
Quarter: 2013Q1

REPORT INFORMATION
  Report Type: Report from Study
  Country: FR (occurrence: FR)
  Receive Date: 20120529
  Receipt Date: 20130319
  Transmission Date: 20140127
  Serious: Yes (Death)
  Sender: FDA-Public Use
  Company Number: FR-ROCHE-1072234

PATIENT
  Sex: 0

DRUGS (26)
  1. RITUXIMAB [Suspect]
     Indication: B-CELL LYMPHOMA
     Dosage: INDUCTION TREATMENT
     Route: 065
     Dates: start: 20081224
  2. RITUXIMAB [Suspect]
     Route: 065
     Dates: start: 20090119
  3. RITUXIMAB [Suspect]
     Route: 065
     Dates: start: 20090218
  4. RITUXIMAB [Suspect]
     Route: 065
     Dates: start: 20090316
  5. RITUXIMAB [Suspect]
     Route: 065
     Dates: start: 20090412
  6. RITUXIMAB [Suspect]
     Route: 065
     Dates: start: 20090519
  7. RITUXIMAB [Suspect]
     Dosage: MAINTAINACE TREATMENT
     Route: 065
     Dates: start: 20090713
  8. RITUXIMAB [Suspect]
     Route: 065
     Dates: start: 20091021
  9. RITUXIMAB [Suspect]
     Route: 065
     Dates: start: 20100120
  10. RITUXIMAB [Suspect]
     Route: 065
     Dates: start: 20100528
  11. RITUXIMAB [Suspect]
     Route: 065
     Dates: start: 20100827
  12. RITUXIMAB [Suspect]
     Route: 065
     Dates: start: 20101129
  13. RITUXIMAB [Suspect]
     Route: 065
     Dates: start: 20110303
  14. RITUXIMAB [Suspect]
     Route: 065
     Dates: start: 20110701
  15. FLUDARABINE [Concomitant]
     Route: 065
     Dates: start: 20081224
  16. FLUDARABINE [Concomitant]
     Route: 065
     Dates: start: 20090119
  17. FLUDARABINE [Concomitant]
     Route: 065
     Dates: start: 20090218
  18. FLUDARABINE [Concomitant]
     Route: 065
     Dates: start: 20090316
  19. FLUDARABINE [Concomitant]
     Route: 065
     Dates: start: 20090412
  20. FLUDARABINE [Concomitant]
     Dosage: INDUCTION TREATMENT
     Route: 065
     Dates: start: 20090519
  21. CYCLOPHOSPHAMIDE [Concomitant]
     Dosage: INDUCTION TREATMENT
     Route: 065
     Dates: start: 20081224
  22. CYCLOPHOSPHAMIDE [Concomitant]
     Route: 065
     Dates: start: 20090119
  23. CYCLOPHOSPHAMIDE [Concomitant]
     Route: 065
     Dates: start: 20090218
  24. CYCLOPHOSPHAMIDE [Concomitant]
     Route: 065
     Dates: start: 20090316
  25. CYCLOPHOSPHAMIDE [Concomitant]
     Route: 065
     Dates: start: 20090412
  26. CYCLOPHOSPHAMIDE [Concomitant]
     Route: 065
     Dates: start: 20090519

REACTIONS (2)
  - Acute myeloid leukaemia [Fatal]
  - Neutropenia [Unknown]
